FAERS Safety Report 8438103 (Version 5)
Quarter: 2012Q4

REPORT INFORMATION
  Report Type: Report from Study
  Country: JP (occurrence: JP)
  Receive Date: 20120302
  Receipt Date: 20121102
  Transmission Date: 20130627
  Serious: Yes (Hospitalization, Other)
  Sender: FDA-Public Use
  Company Number: JP-CELGENEUS-087-21660-12023018

PATIENT
  Age: 74 Year
  Sex: Female
  Weight: 49 kg

DRUGS (14)
  1. ABRAXANE [Suspect]
     Indication: BREAST CANCER METASTATIC
     Dosage: 215 Milligram
     Route: 050
     Dates: start: 20110314
  2. ABRAXANE [Suspect]
     Dosage: 125 milligram/sq. meter
     Route: 050
     Dates: start: 20110607
  3. ABRAXANE [Suspect]
     Dosage: 100 milligram/sq. meter
     Route: 050
     Dates: start: 20110705, end: 20111115
  4. ABRAXANE [Suspect]
     Dosage: 100 milligram/sq. meter
     Route: 050
     Dates: start: 20111206
  5. ALINAMIN EX PLUS [Concomitant]
     Indication: VITAMIN SUPPLEMENTATION
     Dosage: 1 Tablet
     Route: 048
     Dates: start: 1970
  6. AMLODIPINE BESILATE [Concomitant]
     Indication: HYPERTENSION
     Dosage: 5 Milligram
     Route: 048
     Dates: start: 20110314, end: 201106
  7. AMLODIPINE BESILATE [Concomitant]
     Route: 048
     Dates: start: 20111122
  8. AVAPRO [Concomitant]
     Indication: HYPERTENSION
     Dosage: 100 Milligram
     Route: 048
     Dates: start: 20110314, end: 201106
  9. AVAPRO [Concomitant]
     Dates: start: 20111122
  10. VITAMIN B6 [Concomitant]
     Indication: VITAMIN SUPPLEMENTATION
     Route: 065
  11. VITAMIN B12 [Concomitant]
     Indication: VITAMIN SUPPLEMENTATION
     Route: 065
  12. VITAMIN E [Concomitant]
     Indication: VITAMIN SUPPLEMENTATION
     Route: 065
  13. CALCIUM PANTOTHENATE [Concomitant]
     Indication: VITAMIN SUPPLEMENTATION
     Route: 065
  14. GAMMA-ORYZANOL [Concomitant]
     Indication: VITAMIN SUPPLEMENTATION
     Route: 065

REACTIONS (3)
  - Retinal haemorrhage [Recovered/Resolved]
  - Cystoid macular oedema [Not Recovered/Not Resolved]
  - Cataract [Recovered/Resolved]
